FAERS Safety Report 8186348-6 (Version None)
Quarter: 2012Q1

REPORT INFORMATION
  Report Type: 
  Country: None (occurrence: None)
  Receive Date: 20120306
  Receipt Date: 20120223
  Transmission Date: 20120608
  Serious: Yes (Hospitalization)
  Sender: FDA-Public Use
  Company Number: GB-TEVA-325369ISR

PATIENT
  Age: 72 Year
  Sex: Male

DRUGS (4)
  1. BEMIPARIN [Concomitant]
     Route: 042
  2. FLUCLOXACILLIN [Concomitant]
     Route: 042
  3. CIPROFLOXACIN [Suspect]
     Route: 042
  4. TEICOPLANIN [Suspect]
     Route: 042

REACTIONS (1)
  - HEPATITIS CHOLESTATIC [None]
